FAERS Safety Report 8509150-1 (Version None)
Quarter: 2012Q3

REPORT INFORMATION
  Report Type: 
  Country: None (occurrence: None)
  Receive Date: 20120713
  Receipt Date: 20120705
  Transmission Date: 20120928
  Serious: Yes (Other)
  Sender: FDA-Public Use
  Company Number: JP-GLAXOSMITHKLINE-B0813274A

PATIENT
  Age: 7 Decade
  Sex: Female

DRUGS (3)
  1. PAXIL [Suspect]
  2. PAXIL [Suspect]
     Indication: ANXIETY
     Dosage: 10MG PER DAY
     Route: 048
     Dates: start: 20100101
  3. SEROQUEL [Concomitant]
     Dosage: 12.5MG PER DAY

REACTIONS (4)
  - HEPATIC FUNCTION ABNORMAL [None]
  - PNEUMONIA [None]
  - HYPERSOMNIA [None]
  - DEPRESSION [None]
